FAERS Safety Report 9630742 (Version 1)
Quarter: 2013Q4

REPORT INFORMATION
  Report Type: Spontaneous
  Country: US (occurrence: None)
  Receive Date: 20131015
  Receipt Date: 20131015
  Transmission Date: 20140711
  Serious: Yes (Other)
  Sender: FDA-Public Use
  Company Number: AUR-APL-2013-08551

PATIENT
  Age: 16 Year
  Sex: Female

DRUGS (3)
  1. MONTELUKAST [Suspect]
     Indication: RHINITIS ALLERGIC
     Dosage: 1 D
  2. ALBUTEROL SULFATE (SALBUTAMOL SULFATE) [Concomitant]
  3. FLUTICASONE PROPIONATE/SALMETEROL (FLUTICASONE PROPIONATE W SALMETEROL) [Concomitant]

REACTIONS (5)
  - Sleep talking [None]
  - Parasomnia [None]
  - Rhinitis allergic [None]
  - Condition aggravated [None]
  - Somnambulism [None]
